FAERS Safety Report 7035579-7 (Version None)
Quarter: 2010Q4

REPORT INFORMATION
  Report Type: 
  Country: None (occurrence: None)
  Receive Date: 20101008
  Receipt Date: 20100927
  Transmission Date: 20110411
  Serious: Yes (Other)
  Sender: FDA-Public Use
  Company Number: US-PFIZER INC-2010123215

PATIENT
  Sex: Female
  Weight: 54.422 kg

DRUGS (5)
  1. LYRICA [Suspect]
     Indication: MIGRAINE
     Dosage: 75 MG, 2X/DAY
     Route: 048
     Dates: start: 20100913, end: 20100922
  2. XANAX [Suspect]
     Indication: PANIC ATTACK
     Dosage: UNK
     Dates: start: 20100923, end: 20100925
  3. XANAX [Suspect]
     Indication: ANXIETY
  4. PANCRELIPASE [Concomitant]
     Dosage: UNK
  5. NEXIUM [Concomitant]
     Dosage: UNK

REACTIONS (7)
  - ANXIETY [None]
  - DRUG INEFFECTIVE [None]
  - PALPITATIONS [None]
  - PANIC ATTACK [None]
  - TACHYCARDIA [None]
  - TIC [None]
  - TREMOR [None]
